FAERS Safety Report 20175081 (Version 1)
Quarter: 2021Q4

REPORT INFORMATION
  Report Type: Spontaneous
  Country: US (occurrence: None)
  Receive Date: 20211209
  Receipt Date: 20211209
  Transmission Date: 20220303
  Serious: No
  Sender: FDA-Public Use
  Company Number: None

PATIENT
  Age: 44 Year
  Sex: Female

DRUGS (14)
  1. INGREZZA [Suspect]
     Active Substance: VALBENAZINE
     Indication: Tardive dyskinesia
     Dosage: FREQUENCY : DAILY;?
     Route: 048
     Dates: start: 20211013, end: 20211020
  2. MELATONIN [Concomitant]
     Active Substance: MELATONIN
  3. ALBUTEROL SULFATE [Concomitant]
     Active Substance: ALBUTEROL SULFATE
  4. ARIPIPRAZOLE [Concomitant]
     Active Substance: ARIPIPRAZOLE
  5. BUPRENORPHINE\NALOXONE [Concomitant]
     Active Substance: BUPRENORPHINE\NALOXONE
  6. BUPROPION [Concomitant]
     Active Substance: BUPROPION
  7. CLONIDINE [Concomitant]
     Active Substance: CLONIDINE
  8. ESTRADIOL TRANSDERMAL SYSTEM [Concomitant]
     Active Substance: ESTRADIOL
  9. GABAPENTIN [Concomitant]
     Active Substance: GABAPENTIN
  10. LAMOTRIGINE [Concomitant]
     Active Substance: LAMOTRIGINE
  11. LISINOPRIL [Concomitant]
     Active Substance: LISINOPRIL
  12. NORETHINDRONE [Concomitant]
     Active Substance: NORETHINDRONE
  13. TIZANIDINE [Concomitant]
     Active Substance: TIZANIDINE
  14. TOPIRAMATE [Concomitant]
     Active Substance: TOPIRAMATE

REACTIONS (1)
  - Amnesia [None]

NARRATIVE: CASE EVENT DATE: 20211020
